FAERS Safety Report 9671339 (Version 3)
Quarter: 2014Q3

REPORT INFORMATION
  Report Type: Report from Study
  Country: SE (occurrence: SE)
  Receive Date: 20131106
  Receipt Date: 20140905
  Transmission Date: 20150326
  Serious: Yes (Hospitalization)
  Sender: FDA-Public Use
  Company Number: SE-BAYER-2013-026451

PATIENT
  Age: 81 Year
  Sex: Male
  Weight: 76.7 kg

DRUGS (8)
  1. OXYNORM [Concomitant]
     Active Substance: OXYCODONE HYDROCHLORIDE
     Indication: PAIN IN EXTREMITY
     Dosage: 5 MG, PRN
     Route: 048
     Dates: start: 20130123
  2. OXYCONTIN [Concomitant]
     Active Substance: OXYCODONE HYDROCHLORIDE
     Indication: PAIN IN EXTREMITY
     Dosage: DAILY DOSE 40 MG
     Route: 048
     Dates: start: 20130123
  3. LACTULOSE. [Concomitant]
     Active Substance: LACTULOSE
     Indication: CONSTIPATION
     Dosage: 20 ML, PRN
     Route: 048
     Dates: start: 20130213
  4. PREDNISOLON [Concomitant]
     Active Substance: PREDNISOLONE
     Indication: PAIN
     Dosage: 20 MG DAILY
     Route: 048
     Dates: start: 20130213, end: 20130218
  5. RADIUM-223 DICHLORIDE [Suspect]
     Active Substance: RADIUM RA-223 DICHLORIDE
     Indication: PROSTATE CANCER
     Dosage: 50 KBQ/ KG
     Route: 042
     Dates: start: 20130206, end: 20130206
  6. CIPROFLOXACIN. [Concomitant]
     Active Substance: CIPROFLOXACIN
     Indication: INFECTION
     Dosage: 1 G DAILY
     Route: 048
     Dates: start: 20130218, end: 20130220
  7. NORSPAN [Concomitant]
     Active Substance: BUPRENORPHINE
     Indication: PAIN IN EXTREMITY
     Dosage: DAILY DOSE 240 ?G
     Route: 061
     Dates: start: 20130206
  8. CEFOTAXIME [Concomitant]
     Active Substance: CEFOTAXIME\CEFOTAXIME SODIUM
     Indication: INFECTION
     Dosage: 3 G DAILY
     Route: 042
     Dates: start: 20130213, end: 20130218

REACTIONS (3)
  - Constipation [Recovered/Resolved]
  - Bone pain [Recovered/Resolved]
  - Infection [Recovered/Resolved]

NARRATIVE: CASE EVENT DATE: 20130213
